FAERS Safety Report 7966192-2 (Version None)
Quarter: 2011Q4

REPORT INFORMATION
  Report Type: 
  Country: None (occurrence: None)
  Receive Date: 20111208
  Receipt Date: 20111130
  Transmission Date: 20120403
  Serious: Yes (Other)
  Sender: FDA-Public Use
  Company Number: PHHY2011JP105392

PATIENT

DRUGS (2)
  1. ACETAMINOPHEN [Concomitant]
     Dosage: 200 MG, UNK
     Route: 048
  2. VOLTAREN [Suspect]
     Dosage: 25 MG, UNK
     Route: 054

REACTIONS (2)
  - SHOCK [None]
  - BLOOD PRESSURE DECREASED [None]
